FAERS Safety Report 6072031-X (Version None)
Quarter: 2009Q1

REPORT INFORMATION
  Report Type: 
  Country: None (occurrence: None)
  Receive Date: 20090205
  Receipt Date: 20090120
  Transmission Date: 20090719
  Serious: Yes (Hospitalization)
  Sender: FDA-Public Use
  Company Number: 2009S1001121

PATIENT
  Age: 79 Year
  Sex: Male

DRUGS (5)
  1. SERTRALINE HCL [Suspect]
     Indication: DEPRESSION
     Dosage: 25 MG; DAILY; 100 MG; DAILY
  2. ALLOPURINOL [Concomitant]
  3. FELODIPINE [Concomitant]
  4. LOVASTATIN [Concomitant]
  5. OMEPRAZOLE [Concomitant]

REACTIONS (12)
  - ABNORMAL BEHAVIOUR [None]
  - AGGRESSION [None]
  - CORONARY ARTERY DISEASE [None]
  - DYSKINESIA [None]
  - INCORRECT DOSE ADMINISTERED [None]
  - ISCHAEMIA [None]
  - MEMORY IMPAIRMENT [None]
  - PARASOMNIA [None]
  - RESTLESSNESS [None]
  - SLEEP INERTIA [None]
  - SLEEP STUDY ABNORMAL [None]
  - TREMOR [None]
